FAERS Safety Report 21161113 (Version 2)
Quarter: 2022Q3

REPORT INFORMATION
  Report Type: Spontaneous
  Country: CN (occurrence: CN)
  Receive Date: 20220802
  Receipt Date: 20220809
  Transmission Date: 20221026
  Serious: Yes (Other)
  Sender: FDA-Public Use
  Company Number: CN-PFIZER INC-PV202200032874

PATIENT
  Age: 33 Year
  Sex: Female

DRUGS (6)
  1. CYTARABINE [Suspect]
     Active Substance: CYTARABINE
     Dosage: 50 MG
     Route: 037
     Dates: start: 20220713, end: 20220713
  2. CYTARABINE [Suspect]
     Active Substance: CYTARABINE
     Dosage: 3 G, 2X/DAY
     Route: 041
     Dates: start: 20220714, end: 20220715
  3. METHOTREXATE SODIUM [Suspect]
     Active Substance: METHOTREXATE SODIUM
     Dosage: 10 MG
     Route: 037
     Dates: start: 20220713, end: 20220713
  4. DEXAMETHASONE [Suspect]
     Active Substance: DEXAMETHASONE
     Dosage: 40 MG D1-3, 20 MG D4
     Dates: start: 20220713
  5. DEXAMETHASONE [Suspect]
     Active Substance: DEXAMETHASONE
     Dosage: 10 MG
     Dates: start: 20220713, end: 20220713
  6. CISPLATIN [Suspect]
     Active Substance: CISPLATIN
     Dosage: 160 MG D1
     Dates: start: 20220713

REACTIONS (11)
  - Central nervous system injury [Not Recovered/Not Resolved]
  - Hypertension [Unknown]
  - Seizure [Recovered/Resolved]
  - Hypoaesthesia [Not Recovered/Not Resolved]
  - Asthenia [Unknown]
  - Muscular weakness [Unknown]
  - Vision blurred [Unknown]
  - Neck pain [Unknown]
  - Diplopia [Unknown]
  - Dysuria [Unknown]
  - Confusional state [Recovered/Resolved]

NARRATIVE: CASE EVENT DATE: 20220714
